FAERS Safety Report 7408100 (Version 4)
Quarter: 2018Q3

REPORT INFORMATION
  Report Type: Spontaneous
  Country: IT (occurrence: IT)
  Receive Date: 20100603
  Receipt Date: 20180816
  Transmission Date: 20181010
  Serious: Yes (Hospitalization)
  Sender: FDA-Public Use
  Company Number: IT-PFIZER INC-2010065151

PATIENT
  Age: 74 Year
  Sex: Female

DRUGS (2)
  1. FERROUS AMINOPROPANE DICARBOXYLATE [Concomitant]
     Indication: ANAEMIA
     Dosage: 30 DROPS
     Route: 048
  2. SUTENT [Suspect]
     Active Substance: SUNITINIB MALATE
     Indication: GASTRIC CANCER
     Dosage: 50 MG, 1X/DAY
     Route: 048
     Dates: start: 20091116, end: 20091130

REACTIONS (4)
  - Syncope [Recovered/Resolved]
  - Decreased appetite [Recovered/Resolved]
  - Asthenia [Recovered/Resolved]
  - Dysgeusia [Recovered/Resolved]

NARRATIVE: CASE EVENT DATE: 20091124
